FAERS Safety Report 21466848 (Version 2)
Quarter: 2022Q4

REPORT INFORMATION
  Report Type: Spontaneous
  Country: US (occurrence: US)
  Receive Date: 20221017
  Receipt Date: 20221031
  Transmission Date: 20230113
  Serious: Yes (Death, Other)
  Sender: FDA-Public Use
  Company Number: US-DSPHARMA-2022SUN002978

PATIENT
  Sex: Male

DRUGS (2)
  1. LATUDA [Suspect]
     Active Substance: LURASIDONE HYDROCHLORIDE
     Dosage: UNK
     Route: 048
  2. RISPERDAL [Suspect]
     Active Substance: RISPERIDONE
     Dosage: UNK
     Route: 065

REACTIONS (4)
  - Death [Fatal]
  - Schizophrenia [Recovered/Resolved]
  - Tardive dyskinesia [Recovered/Resolved]
  - Gait disturbance [Recovered/Resolved]
